FAERS Safety Report 4028231 (Version 10)
Quarter: 2015Q2

REPORT INFORMATION
  Report Type: Spontaneous
  Country: JP (occurrence: JP)
  Receive Date: 20031114
  Receipt Date: 20150508
  Transmission Date: 20150821
  Serious: Yes (Death, Hospitalization, Other)
  Sender: FDA-Public Use
  Company Number: PHBS2003JP09355

PATIENT
  Age: 73 Year
  Sex: Male
  Weight: 37 kg

DRUGS (9)
  1. DAI-KENCHU-TO [Concomitant]
     Active Substance: MALTOSE
     Indication: PRODUCT USED FOR UNKNOWN INDICATION
     Dosage: 5 G, UNK
     Route: 048
     Dates: start: 20060701, end: 20070503
  2. CYTOTEC [Concomitant]
     Active Substance: MISOPROSTOL
     Indication: PROPHYLAXIS AGAINST GASTROINTESTINAL ULCER
     Dosage: 100 MG, UNK
     Route: 048
     Dates: start: 200607, end: 20070503
  3. LAC B [Concomitant]
     Active Substance: BIFIDOBACTERIUM SPP.
     Indication: PRODUCT USED FOR UNKNOWN INDICATION
     Dosage: 3 G, UNK
     Route: 048
     Dates: start: 20060701, end: 20070503
  4. LOXONIN [Concomitant]
     Active Substance: LOXOPROFEN SODIUM
     Indication: BACK PAIN
     Dosage: 120 MG, UNK
     Route: 048
     Dates: start: 20060701, end: 20070503
  5. GLIVEC [Suspect]
     Active Substance: IMATINIB MESYLATE
     Dosage: 400 MG, UNK
     Route: 048
     Dates: start: 20030922, end: 20030930
  6. GLIVEC [Suspect]
     Active Substance: IMATINIB MESYLATE
     Dosage: 200 MG, UNK
     Route: 048
     Dates: start: 20031031
  7. GLIVEC [Suspect]
     Active Substance: IMATINIB MESYLATE
     Indication: GASTROINTESTINAL STROMAL TUMOUR
     Dosage: 400 MG, QD
     Route: 048
     Dates: start: 20030731, end: 20030822
  8. GLIVEC [Suspect]
     Active Substance: IMATINIB MESYLATE
     Dosage: 200 MG, UNK
     Route: 048
     Dates: start: 20060701, end: 20070419
  9. GLIVEC [Suspect]
     Active Substance: IMATINIB MESYLATE
     Dosage: 100 MG, BID
     Route: 048
     Dates: start: 20031031, end: 20070419

REACTIONS (29)
  - Generalised oedema [Fatal]
  - Hepatic enzyme increased [Unknown]
  - C-reactive protein increased [Fatal]
  - Respiratory disorder [Fatal]
  - Liver disorder [Not Recovered/Not Resolved]
  - Fall [Unknown]
  - Platelet count decreased [Fatal]
  - Immunosuppression [Fatal]
  - Gait disturbance [Unknown]
  - Nausea [Recovering/Resolving]
  - Rash [Recovering/Resolving]
  - Contusion [Recovering/Resolving]
  - Haemorrhage subcutaneous [Not Recovered/Not Resolved]
  - Ascites [Fatal]
  - Oedema peripheral [Not Recovered/Not Resolved]
  - Tumour haemorrhage [Recovering/Resolving]
  - Haemorrhage subcutaneous [Not Recovered/Not Resolved]
  - Pulmonary tuberculosis [Fatal]
  - Epistaxis [Not Recovered/Not Resolved]
  - Abdominal pain [Recovering/Resolving]
  - Vomiting [Recovering/Resolving]
  - Haemorrhage subcutaneous [Recovering/Resolving]
  - Epistaxis [Recovering/Resolving]
  - Malaise [Fatal]
  - Thrombocytopenia [Fatal]
  - Pneumonia [Fatal]
  - Haemorrhage subcutaneous [Recovering/Resolving]
  - Epistaxis [Recovering/Resolving]
  - Epistaxis [Recovering/Resolving]

NARRATIVE: CASE EVENT DATE: 20030810
